FAERS Safety Report 9832429 (Version 3)
Quarter: 2014Q1

REPORT INFORMATION
  Report Type: Spontaneous
  Country: US (occurrence: US)
  Receive Date: 20140121
  Receipt Date: 20140328
  Transmission Date: 20141002
  Serious: Yes (Hospitalization, Other)
  Sender: FDA-Public Use
  Company Number: US-PFIZER INC-2014018352

PATIENT
  Age: 73 Year
  Sex: Female
  Weight: 81.63 kg

DRUGS (3)
  1. CELEBREX [Suspect]
     Indication: SPONDYLITIS
     Dosage: 200 MG, 2X/DAY
     Dates: end: 20140114
  2. CELEBREX [Suspect]
     Indication: ARTHRITIS
  3. DEXILANT [Concomitant]
     Indication: GASTROOESOPHAGEAL REFLUX DISEASE
     Dosage: 30 MG, 1X/DAY

REACTIONS (8)
  - Ulcer haemorrhage [Unknown]
  - Haematemesis [Unknown]
  - Gait disturbance [Unknown]
  - Dyspnoea [Unknown]
  - Dizziness [Unknown]
  - Malaise [Unknown]
  - Activities of daily living impaired [Unknown]
  - Pain [Unknown]
